FAERS Safety Report 6014440-0 (Version None)
Quarter: 2008Q4

REPORT INFORMATION
  Report Type: 
  Country: None (occurrence: None)
  Receive Date: 20081219
  Receipt Date: 20080618
  Transmission Date: 20090506
  Serious: No
  Sender: FDA-Public Use
  Company Number: A0733713A

PATIENT
  Age: 76 Year
  Sex: Male

DRUGS (4)
  1. AVODART [Suspect]
     Indication: BENIGN PROSTATIC HYPERPLASIA
     Dosage: 1CAP PER DAY
     Route: 048
  2. HAWTHORN BERRY [Concomitant]
  3. Q10 [Concomitant]
  4. SPIRONOLACTONE [Concomitant]

REACTIONS (2)
  - HYPOAESTHESIA [None]
  - PRURITUS [None]
